FAERS Safety Report 25808120 (Version 1)
Quarter: 2025Q3

REPORT INFORMATION
  Report Type: Spontaneous
  Country: US (occurrence: US)
  Receive Date: 20250916
  Receipt Date: 20250916
  Transmission Date: 20251020
  Serious: Yes (Other)
  Sender: MYLAN
  Company Number: US-MYLANLABS-2025M1077314

PATIENT
  Age: 57 Year
  Sex: Male

DRUGS (30)
  1. GABAPENTIN [Suspect]
     Active Substance: GABAPENTIN
     Indication: Cancer pain
  2. GABAPENTIN [Suspect]
     Active Substance: GABAPENTIN
     Indication: Back pain
  3. FENTANYL [Suspect]
     Active Substance: FENTANYL
     Indication: Cancer pain
     Dosage: 7.5 MICROGRAM, QD
  4. FENTANYL [Suspect]
     Active Substance: FENTANYL
     Indication: Back pain
  5. METHADONE [Suspect]
     Active Substance: METHADONE HYDROCHLORIDE
     Indication: Cancer pain
     Dosage: 50 MILLIGRAM, Q8H
  6. METHADONE [Suspect]
     Active Substance: METHADONE HYDROCHLORIDE
     Indication: Back pain
  7. BUPIVACAINE [Suspect]
     Active Substance: BUPIVACAINE
     Indication: Cancer pain
  8. BUPIVACAINE [Suspect]
     Active Substance: BUPIVACAINE
     Indication: Back pain
  9. CYCLOBENZAPRINE [Suspect]
     Active Substance: CYCLOBENZAPRINE
     Indication: Cancer pain
  10. CYCLOBENZAPRINE [Suspect]
     Active Substance: CYCLOBENZAPRINE
     Indication: Back pain
  11. IMIPRAMINE [Suspect]
     Active Substance: IMIPRAMINE
     Indication: Cancer pain
  12. IMIPRAMINE [Suspect]
     Active Substance: IMIPRAMINE
     Indication: Back pain
  13. NIFEDIPINE [Suspect]
     Active Substance: NIFEDIPINE
     Indication: Cancer pain
  14. NIFEDIPINE [Suspect]
     Active Substance: NIFEDIPINE
     Indication: Back pain
  15. BUPIVACAINE [Suspect]
     Active Substance: BUPIVACAINE
     Indication: Cancer pain
     Dosage: 6.4 MILLIGRAM, QD
  16. BUPIVACAINE [Suspect]
     Active Substance: BUPIVACAINE
     Indication: Back pain
  17. HYDROMORPHONE [Suspect]
     Active Substance: HYDROMORPHONE
     Indication: Cancer pain
     Dosage: 8 MILLIGRAM, Q3H,AS NEEDED BASIS
  18. HYDROMORPHONE [Suspect]
     Active Substance: HYDROMORPHONE
     Indication: Back pain
  19. OXYCODONE [Suspect]
     Active Substance: OXYCODONE
     Indication: Cancer pain
     Dosage: 20 MILLIGRAM, Q3H, AS NEEDED BASIS
  20. OXYCODONE [Suspect]
     Active Substance: OXYCODONE
     Indication: Back pain
  21. KETAMINE [Concomitant]
     Active Substance: KETAMINE
     Indication: Cancer pain
  22. KETAMINE [Concomitant]
     Active Substance: KETAMINE
     Indication: Back pain
  23. KETAMINE [Concomitant]
     Active Substance: KETAMINE
     Indication: Cancer pain
     Dosage: 100 MILLIGRAM, MONTHLY
  24. KETAMINE [Concomitant]
     Active Substance: KETAMINE
     Indication: Back pain
  25. AMITRIPTYLINE [Concomitant]
     Active Substance: AMITRIPTYLINE
     Indication: Insomnia
  26. AMITRIPTYLINE [Concomitant]
     Active Substance: AMITRIPTYLINE
     Indication: Neuralgia
  27. BUPROPION [Concomitant]
     Active Substance: BUPROPION
     Indication: Affective disorder
     Dosage: 200 MILLIGRAM, BID, SUSTAINED-RELEASE
  28. DULOXETINE [Concomitant]
     Active Substance: DULOXETINE
     Indication: Intervertebral disc degeneration
     Dosage: 60 MILLIGRAM, BID
  29. PREGABALIN [Concomitant]
     Active Substance: PREGABALIN
     Indication: Failed back surgery syndrome
     Dosage: 150 MILLIGRAM, BID
  30. TOPIRAMATE [Concomitant]
     Active Substance: TOPIRAMATE
     Indication: Failed back surgery syndrome
     Dosage: 200 MILLIGRAM, BID

REACTIONS (5)
  - Treatment failure [Unknown]
  - Constipation [Unknown]
  - Nausea [Unknown]
  - Vomiting [Unknown]
  - Sedation [Unknown]
